FAERS Safety Report 21862780 (Version 1)
Quarter: 2023Q1

REPORT INFORMATION
  Report Type: Spontaneous
  Country: US (occurrence: US)
  Receive Date: 20230114
  Receipt Date: 20230114
  Transmission Date: 20230417
  Serious: No
  Sender: FDA-Public Use
  Company Number: US-SA-SAC20230112001303

PATIENT
  Sex: Male

DRUGS (4)
  1. DUPIXENT [Suspect]
     Active Substance: DUPILUMAB
     Indication: Eczema eyelids
     Dosage: 300 MG , QOW
     Route: 058
     Dates: start: 20210128
  2. AMLODIPINE [Concomitant]
     Active Substance: AMLODIPINE BESYLATE
  3. PRAVASTATIN [Concomitant]
     Active Substance: PRAVASTATIN
  4. SHINGRIX [Concomitant]
     Active Substance: RECOMBINANT VARICELLA ZOSTER VIRUS (VZV) GLYCOPROTEIN E

REACTIONS (1)
  - Sleep disorder [Not Recovered/Not Resolved]
